FAERS Safety Report 6270472-9 (Version None)
Quarter: 2009Q3

REPORT INFORMATION
  Report Type: 
  Country: None (occurrence: None)
  Receive Date: 20090716
  Receipt Date: 20090714
  Transmission Date: 20100115
  Serious: Yes (Death, Other)
  Sender: FDA-Public Use
  Company Number: AU-BRISTOL-MYERS SQUIBB COMPANY-14581599

PATIENT
  Age: 78 Year
  Sex: Female
  Weight: 44 kg

DRUGS (3)
  1. ABILIFY [Suspect]
  2. BENZODIAZEPINES [Suspect]
  3. PAROXETINE HCL [Suspect]

REACTIONS (2)
  - DEATH [None]
  - FALL [None]
